FAERS Safety Report 19191760 (Version 1)
Quarter: 2021Q2

REPORT INFORMATION
  Report Type: Spontaneous
  Country: US (occurrence: US)
  Receive Date: 20210429
  Receipt Date: 20210429
  Transmission Date: 20210717
  Serious: No
  Sender: FDA-Public Use
  Company Number: US-AKCEA THERAPEUTICS, INC.-2021IS001186

PATIENT
  Age: 74 Year
  Sex: Male

DRUGS (2)
  1. TEGSEDI [Suspect]
     Active Substance: INOTERSEN SODIUM
     Indication: HEREDITARY NEUROPATHIC AMYLOIDOSIS
     Route: 058
  2. ISSD (INTEGRATED SYRINGE SAFETY DEVICE) [Suspect]
     Active Substance: DEVICE

REACTIONS (9)
  - Fungal test positive [Unknown]
  - Blood creatine abnormal [Not Recovered/Not Resolved]
  - Urinary casts [Unknown]
  - Crystal urine present [Not Recovered/Not Resolved]
  - Protein urine present [Unknown]
  - Urine abnormality [Not Recovered/Not Resolved]
  - Urine leukocyte esterase positive [Unknown]
  - Urine protein/creatinine ratio abnormal [Not Recovered/Not Resolved]
  - White blood cells urine positive [Unknown]
